FAERS Safety Report 23487072 (Version 1)
Quarter: 2024Q1

REPORT INFORMATION
  Report Type: Spontaneous
  Country: US (occurrence: US)
  Receive Date: 20240206
  Receipt Date: 20240206
  Transmission Date: 20240409
  Serious: No
  Sender: FDA-Public Use
  Company Number: US-JUBILANT PHARMA LTD-2024US000017

PATIENT
  Sex: Female

DRUGS (1)
  1. SODIUM IODIDE I-131 [Suspect]
     Active Substance: SODIUM IODIDE I-131
     Indication: Iodine uptake
     Dosage: 9 ?CI, SINGLE DOSE
     Dates: start: 20240103, end: 20240103

REACTIONS (1)
  - Discoloured vomit [Not Recovered/Not Resolved]
